FAERS Safety Report 24396377 (Version 1)
Quarter: 2024Q4

REPORT INFORMATION
  Report Type: Spontaneous
  Country: FR (occurrence: FR)
  Receive Date: 20241004
  Receipt Date: 20241004
  Transmission Date: 20250115
  Serious: Yes (Disabling)
  Sender: RANBAXY
  Company Number: FR-SUN PHARMACEUTICAL INDUSTRIES LTD-2024RR-471049

PATIENT
  Age: 73 Year
  Sex: Male

DRUGS (7)
  1. OXALIPLATIN [Suspect]
     Active Substance: OXALIPLATIN
     Indication: Pancreatic carcinoma
     Dosage: 145 MILLIGRAM
     Route: 040
     Dates: start: 20231229, end: 20240209
  2. LEVOLEUCOVORIN CALCIUM [Concomitant]
     Active Substance: LEVOLEUCOVORIN CALCIUM
     Indication: Product used for unknown indication
     Dosage: 350 MILLIGRAM
     Route: 040
     Dates: start: 20231229, end: 20240209
  3. EMEND [Concomitant]
     Active Substance: APREPITANT
     Indication: Product used for unknown indication
     Dosage: 280 MILLIGRAM
     Route: 048
     Dates: start: 20231229
  4. ONDANSETRON [Concomitant]
     Active Substance: ONDANSETRON
     Indication: Product used for unknown indication
     Dosage: 1 DOSAGE FORM
     Route: 040
     Dates: start: 20231229
  5. FLUOROURACIL [Concomitant]
     Active Substance: FLUOROURACIL
     Indication: Product used for unknown indication
     Dosage: 3300 MILLIGRAM
     Route: 040
     Dates: start: 20231229, end: 20240209
  6. IRINOTECAN [Concomitant]
     Active Substance: IRINOTECAN
     Indication: Product used for unknown indication
     Dosage: 1 DOSAGE FORM
     Route: 040
     Dates: start: 20231229, end: 20231229
  7. METHYLPREDNISOLONE [Concomitant]
     Active Substance: METHYLPREDNISOLONE
     Indication: Product used for unknown indication
     Dosage: 60 MILLIGRAM
     Route: 040
     Dates: start: 20231229, end: 20240209

REACTIONS (1)
  - Deafness neurosensory [Recovered/Resolved with Sequelae]

NARRATIVE: CASE EVENT DATE: 20240301
